FAERS Safety Report 9397653 (Version 1)
Quarter: 2013Q3

REPORT INFORMATION
  Report Type: Spontaneous
  Country: GB (occurrence: GB)
  Receive Date: 20130712
  Receipt Date: 20130712
  Transmission Date: 20140515
  Serious: Yes (Hospitalization)
  Sender: FDA-Public Use
  Company Number: GB-ROCHE-1247827

PATIENT
  Age: 43 Year
  Sex: Female
  Weight: 66.67 kg

DRUGS (1)
  1. ISOTRETINOIN [Suspect]
     Indication: ACNE
     Route: 048
     Dates: start: 201111, end: 201202

REACTIONS (6)
  - Dizziness [Unknown]
  - Headache [Unknown]
  - Nausea [Unknown]
  - Tinnitus [Unknown]
  - Balance disorder [Unknown]
  - Vertigo [Recovering/Resolving]
